FAERS Safety Report 17631595 (Version 1)
Quarter: 2020Q3

REPORT INFORMATION
  Report Type: Spontaneous
  Country: US (occurrence: US)
  Receive Date: 20200406
  Receipt Date: 20200406
  Transmission Date: 20201104
  Serious: Yes (Other)
  Sender: FDA-Public Use
  Company Number: US-MYLANLABS-2020M1034866

PATIENT
  Age: 67 Year
  Sex: Female

DRUGS (11)
  1. CISPLATIN. [Suspect]
     Active Substance: CISPLATIN
     Indication: OVARIAN EPITHELIAL CANCER
     Dosage: 30 MILLIGRAM/SQ. METER, RECEIVED 4 CYCLES
     Route: 065
     Dates: start: 2018, end: 201812
  2. LIPOSOMAL DOXORUBICIN HCL [Suspect]
     Active Substance: DOXORUBICIN HYDROCHLORIDE
     Indication: OVARIAN EPITHELIAL CANCER
     Dosage: 40 MILLIGRAM/SQ. METER
     Route: 065
     Dates: start: 201803
  3. PACLITAXEL. [Suspect]
     Active Substance: PACLITAXEL
     Indication: OVARIAN EPITHELIAL CANCER
     Dosage: RECEIVED 4 CYCLES, FOLLOWED BY ADDITIONAL 4 CYCLES AT THE SAME DOSAGE.
     Route: 065
     Dates: start: 2016, end: 201610
  4. GEMCITABINE. [Suspect]
     Active Substance: GEMCITABINE
     Indication: OVARIAN EPITHELIAL CANCER
     Dosage: 800 MILLIGRAM/SQ. METER, FOR 5 CYCLES.
     Route: 065
     Dates: start: 201709, end: 201803
  5. GEMCITABINE. [Suspect]
     Active Substance: GEMCITABINE
     Dosage: 750 MILLIGRAM/SQ. METER, RECEIVED 4 CYCLES
     Route: 065
     Dates: start: 2018, end: 201812
  6. OLAPARIB. [Suspect]
     Active Substance: OLAPARIB
     Indication: OVARIAN EPITHELIAL CANCER
     Dosage: 300 MILLIGRAM
     Route: 065
     Dates: start: 201702, end: 201709
  7. CARBOPLATIN. [Suspect]
     Active Substance: CARBOPLATIN
     Indication: OVARIAN EPITHELIAL CANCER
     Dosage: DOSE: AUC = 6; RECEIVED 4 CYCLES, FOLLOWED BY ADDITIONAL 4 CYCLES AT THE SAME DOSAGE.
     Route: 065
     Dates: start: 2016, end: 201610
  8. TOPOTECAN [Suspect]
     Active Substance: TOPOTECAN HYDROCHLORIDE
     Indication: OVARIAN EPITHELIAL CANCER
     Dosage: 2 MILLIGRAM/SQ. METER,RECEIVED 2 CYCLES
     Route: 065
     Dates: start: 2018, end: 2018
  9. CEDIRANIB. [Suspect]
     Active Substance: CEDIRANIB
     Indication: OVARIAN EPITHELIAL CANCER
     Dosage: 20 MILLIGRAM
     Route: 065
     Dates: start: 201702, end: 201709
  10. MIRVETUXIMAB SORAVTANSINE [Suspect]
     Active Substance: MIRVETUXIMAB SORAVTANSINE
     Indication: OVARIAN EPITHELIAL CANCER
     Dosage: 5 MILLIGRAM/KILOGRAM,FOR 5 CYCLES.
     Route: 065
     Dates: start: 201709, end: 201803
  11. BEVACIZUMAB. [Suspect]
     Active Substance: BEVACIZUMAB
     Indication: OVARIAN EPITHELIAL CANCER
     Dosage: 10 MILLIGRAM/KILOGRAM
     Route: 065
     Dates: start: 201803

REACTIONS (1)
  - Treatment failure [Unknown]
